FAERS Safety Report 9437911 (Version 1)
Quarter: 2013Q3

REPORT INFORMATION
  Report Type: Spontaneous
  Country: US (occurrence: US)
  Receive Date: 20130802
  Receipt Date: 20130802
  Transmission Date: 20140515
  Serious: No
  Sender: FDA-Public Use
  Company Number: US-BRISTOL-MYERS SQUIBB COMPANY-18748582

PATIENT
  Age: 87 Year
  Sex: Male
  Weight: 63.49 kg

DRUGS (2)
  1. COUMADIN [Suspect]
     Indication: AORTIC VALVE REPLACEMENT
     Dosage: PRESCRIPTION#: 7209992?1DF: 2.5 TO 3.5 MG
     Dates: start: 199901
  2. COLACE [Interacting]
     Dosage: 1DF:4 CAPS/DAY FOR PAST 3-4 YRS

REACTIONS (3)
  - Drug ineffective [Unknown]
  - Body height decreased [Unknown]
  - Drug interaction [Unknown]
